FAERS Safety Report 12410787 (Version 1)
Quarter: 2016Q2

REPORT INFORMATION
  Report Type: Spontaneous
  Country: IT (occurrence: IT)
  Receive Date: 20160527
  Receipt Date: 20160527
  Transmission Date: 20160815
  Serious: Yes (Other)
  Sender: FDA-Public Use
  Company Number: IT-009507513-1605ITA012290

PATIENT
  Age: 51 Year
  Sex: Male

DRUGS (3)
  1. PERPHENAZINE. [Suspect]
     Active Substance: PERPHENAZINE
     Dosage: UNK
     Route: 048
  2. HALDOL [Suspect]
     Active Substance: HALOPERIDOL
     Route: 048
  3. TAVOR (LORAZEPAM) [Suspect]
     Active Substance: LORAZEPAM
     Route: 048

REACTIONS (2)
  - Idiosyncratic alcohol intoxication [Unknown]
  - Agitation [Unknown]

NARRATIVE: CASE EVENT DATE: 20160422
